FAERS Safety Report 17018923 (Version 1)
Quarter: 2019Q4

REPORT INFORMATION
  Report Type: Spontaneous
  Country: NL (occurrence: FR)
  Receive Date: 20191112
  Receipt Date: 20191112
  Transmission Date: 20200122
  Serious: Yes (Death, Life-Threatening, Other)
  Sender: FDA-Public Use
  Company Number: FR-FRESENIUS KABI-FK201911953

PATIENT
  Sex: Female

DRUGS (6)
  1. LACTATED RINGERS SOLUTION [Suspect]
     Active Substance: CALCIUM CHLORIDE\POTASSIUM CHLORIDE\SODIUM CHLORIDE\SODIUM LACTATE
     Indication: PRODUCT USED FOR UNKNOWN INDICATION
     Dosage: UNK
     Route: 042
     Dates: start: 20190331, end: 20190407
  2. CYTARABINE/DAUNORUBICIN [Suspect]
     Active Substance: CYTARABINE\DAUNORUBICIN
     Indication: ACUTE MYELOID LEUKAEMIA
     Dosage: POWDER FOR CONCENTRATE FOR SOLUTION FOR INFUSION1.8 IU, D1, 3, 5
     Route: 042
     Dates: start: 20190401, end: 20190405
  3. MICAFUNGIN. [Suspect]
     Active Substance: MICAFUNGIN SODIUM
     Indication: PRODUCT USED FOR UNKNOWN INDICATION
     Dosage: 50 MG, UNK
     Route: 042
     Dates: start: 20190401, end: 20190419
  4. PIPERACILLIN SODIUM/TAZOBACTAM SODIUM [Suspect]
     Active Substance: PIPERACILLIN SODIUM\TAZOBACTAM SODIUM
     Indication: PRODUCT USED FOR UNKNOWN INDICATION
     Dosage: UNK, TID
     Route: 042
     Dates: start: 20190328, end: 20190409
  5. SULFAMETHOXAZOLE/TRIMETHOPRIM [Suspect]
     Active Substance: SULFAMETHOXAZOLE\TRIMETHOPRIM
     Indication: PRODUCT USED FOR UNKNOWN INDICATION
     Dosage: 1 TABLET TID
     Route: 048
     Dates: start: 20190330
  6. VALACICLOVIR [Suspect]
     Active Substance: VALACYCLOVIR HYDROCHLORIDE
     Indication: PRODUCT USED FOR UNKNOWN INDICATION
     Dosage: 500 MG, BID
     Route: 048
     Dates: start: 20190330, end: 20190416

REACTIONS (12)
  - Diarrhoea [Unknown]
  - Peritonitis [Unknown]
  - Septic shock [Unknown]
  - Faecaloma [Unknown]
  - Haemorrhagic stroke [Fatal]
  - Rectal haemorrhage [Unknown]
  - Pleural effusion [Unknown]
  - Gastrooesophageal reflux disease [Unknown]
  - Large intestine perforation [Unknown]
  - Hypoxia [Unknown]
  - Shock haemorrhagic [Unknown]
  - Weight increased [Unknown]

NARRATIVE: CASE EVENT DATE: 20190404
